FAERS Safety Report 13471361 (Version 1)
Quarter: 2017Q2

REPORT INFORMATION
  Report Type: Spontaneous
  Country: US (occurrence: US)
  Receive Date: 20170421
  Receipt Date: 20170421
  Transmission Date: 20170830
  Serious: No
  Sender: FDA-Public Use
  Company Number: None

PATIENT
  Age: 70 Year
  Sex: Female

DRUGS (1)
  1. GLEEVEC [Suspect]
     Active Substance: IMATINIB MESYLATE
     Indication: MYELOID LEUKAEMIA
     Route: 048
     Dates: start: 20170123, end: 20170421

REACTIONS (8)
  - Product substitution issue [None]
  - Asthenia [None]
  - Nausea [None]
  - Pain in jaw [None]
  - Lacrimation increased [None]
  - Amnesia [None]
  - Paraesthesia [None]
  - Vomiting [None]

NARRATIVE: CASE EVENT DATE: 20170421
